FAERS Safety Report 20383645 (Version 1)
Quarter: 2022Q1

REPORT INFORMATION
  Report Type: Spontaneous
  Country: US (occurrence: None)
  Receive Date: 20220127
  Receipt Date: 20220127
  Transmission Date: 20220423
  Serious: Yes (Other)
  Sender: FDA-Public Use
  Company Number: None

PATIENT
  Age: 47 Year
  Sex: Male
  Weight: 110.25 kg

DRUGS (15)
  1. GAMMAGARD [Suspect]
     Active Substance: HUMAN IMMUNOGLOBULIN G
     Indication: Chronic inflammatory demyelinating polyradiculoneuropathy
     Dosage: OTHER FREQUENCY : 2 CONSECUTIVE DAYS;?
     Route: 041
  2. ACETAMINOPHEN [Concomitant]
     Active Substance: ACETAMINOPHEN
  3. BACLOFEN [Concomitant]
     Active Substance: BACLOFEN
  4. CLONIDINE [Concomitant]
     Active Substance: CLONIDINE
  5. FENOFIBRATE [Concomitant]
     Active Substance: FENOFIBRATE
  6. FISH OIL [Concomitant]
     Active Substance: FISH OIL
  7. FLUVOXAMINE [Concomitant]
     Active Substance: FLUVOXAMINE
  8. LEVOTHYROXINE [Concomitant]
     Active Substance: LEVOTHYROXINE
  9. MAGNESIUM MALATE [Concomitant]
     Active Substance: MAGNESIUM MALATE
  10. MIRAPEX [Concomitant]
     Active Substance: PRAMIPEXOLE DIHYDROCHLORIDE
  11. OLANZAPINE [Concomitant]
     Active Substance: OLANZAPINE
  12. PROBIOTICS NOS [Concomitant]
     Active Substance: PROBIOTICS NOS
  13. TESTOSTERONE [Concomitant]
     Active Substance: TESTOSTERONE
  14. VITAMIN D3 [Concomitant]
     Active Substance: CHOLECALCIFEROL
  15. ZINC GLUCONATE [Concomitant]
     Active Substance: ZINC GLUCONATE

REACTIONS (4)
  - Infusion related reaction [None]
  - Chest pain [None]
  - Dyspnoea [None]
  - Tinnitus [None]

NARRATIVE: CASE EVENT DATE: 20220126
